FAERS Safety Report 16837701 (Version 3)
Quarter: 2019Q4

REPORT INFORMATION
  Report Type: Report from Study
  Country: None (occurrence: PE)
  Receive Date: 20190923
  Receipt Date: 20191206
  Transmission Date: 20200122
  Serious: Yes (Hospitalization, Other)
  Sender: FDA-Public Use
  Company Number: PE-ABBVIE-19K-127-2934672-00

PATIENT
  Age: 67 Year
  Sex: Female
  Weight: 69 kg

DRUGS (1)
  1. HUMIRA [Suspect]
     Active Substance: ADALIMUMAB
     Indication: RHEUMATOID ARTHRITIS
     Route: 058
     Dates: start: 20141117, end: 20190826

REACTIONS (9)
  - Diverticulitis [Recovering/Resolving]
  - Joint range of motion decreased [Unknown]
  - Cough [Recovering/Resolving]
  - Decreased appetite [Unknown]
  - Lymph node tuberculosis [Recovering/Resolving]
  - Musculoskeletal disorder [Recovering/Resolving]
  - Cerebral disorder [Recovering/Resolving]
  - Nodule [Unknown]
  - Neck mass [Recovering/Resolving]

NARRATIVE: CASE EVENT DATE: 2018
